FAERS Safety Report 18050904 (Version 1)
Quarter: 2020Q3

REPORT INFORMATION
  Report Type: Spontaneous
  Country: ES (occurrence: ES)
  Receive Date: 20200721
  Receipt Date: 20200721
  Transmission Date: 20201103
  Serious: Yes (Hospitalization)
  Sender: FDA-Public Use
  Company Number: NVSC2020ES201099

PATIENT
  Age: 19 Year
  Sex: Male
  Weight: 53.6 kg

DRUGS (3)
  1. CITARABINA [Concomitant]
     Active Substance: CYTARABINE
     Indication: MYELOID LEUKAEMIA
     Dosage: 3060 MG, QD
     Route: 042
     Dates: start: 20200610, end: 20200614
  2. FLUDARABINE PHOSPHATE. [Suspect]
     Active Substance: FLUDARABINE PHOSPHATE
     Indication: MYELOID LEUKAEMIA
     Dosage: 38 MG, QD
     Route: 042
     Dates: start: 20200610, end: 20200614
  3. ZARZIO [Suspect]
     Active Substance: FILGRASTIM
     Indication: MYELOID LEUKAEMIA
     Dosage: 300 UG, Q12H
     Route: 058
     Dates: start: 20200609, end: 20200614

REACTIONS (1)
  - Cystitis haemorrhagic [Recovered/Resolved]

NARRATIVE: CASE EVENT DATE: 20200617
